FAERS Safety Report 12849361 (Version 1)
Quarter: 2016Q4

REPORT INFORMATION
  Report Type: Spontaneous
  Country: ES (occurrence: ES)
  Receive Date: 20161014
  Receipt Date: 20161014
  Transmission Date: 20170207
  Serious: Yes (Death, Hospitalization)
  Sender: FDA-Public Use
  Company Number: ES-MYLANLABS-2016M1042686

PATIENT

DRUGS (2)
  1. OMEPRAZOLE. [Suspect]
     Active Substance: OMEPRAZOLE
     Indication: FLATULENCE
     Dosage: UNK
  2. DOMPERIDONE [Suspect]
     Active Substance: DOMPERIDONE
     Indication: FLATULENCE
     Dosage: UNK

REACTIONS (3)
  - Intestinal obstruction [Fatal]
  - General physical health deterioration [Not Recovered/Not Resolved]
  - Faecaloma [Fatal]

NARRATIVE: CASE EVENT DATE: 201304
